FAERS Safety Report 7674912-X (Version None)
Quarter: 2011Q3

REPORT INFORMATION
  Report Type: 
  Country: None (occurrence: None)
  Receive Date: 20110810
  Receipt Date: 20110728
  Transmission Date: 20111222
  Serious: Yes (Other)
  Sender: FDA-Public Use
  Company Number: CA-ELI_LILLY_AND_COMPANY-CA201107007597

PATIENT
  Sex: Female

DRUGS (3)
  1. ZYPREXA [Suspect]
     Indication: SCHIZOPHRENIA
     Dosage: 7.5 MG, UNKNOWN
  2. ATIVAN [Concomitant]
  3. ZYPREXA [Suspect]
     Dosage: 5 MG, UNKNOWN

REACTIONS (4)
  - RECTAL HAEMORRHAGE [None]
  - GALLBLADDER ENLARGEMENT [None]
  - TYPE 2 DIABETES MELLITUS [None]
  - HYPERCHOLESTEROLAEMIA [None]
